FAERS Safety Report 5147784-5 (Version None)
Quarter: 2006Q4

REPORT INFORMATION
  Report Type: 
  Country: None (occurrence: None)
  Receive Date: 20061110
  Receipt Date: 20061002
  Transmission Date: 20070319
  Serious: Yes (Hospitalization)
  Sender: FDA-Public Use
  Company Number: PHMT2006CA01905

PATIENT
  Age: 45 Year
  Sex: Male

DRUGS (2)
  1. APO-TEMAZEPAM [Concomitant]
     Dosage: 30 MG
     Route: 048
  2. CLOZARIL [Suspect]
     Dosage: 275 MG
     Route: 048
     Dates: start: 20060929, end: 20060929

REACTIONS (2)
  - DIZZINESS [None]
  - DRUG DISPENSING ERROR [None]
